FAERS Safety Report 5501076-0 (Version None)
Quarter: 2007Q4

REPORT INFORMATION
  Report Type: 
  Country: None (occurrence: None)
  Receive Date: 20071029
  Receipt Date: 20071023
  Transmission Date: 20080405
  Serious: Yes (Hospitalization, Other)
  Sender: FDA-Public Use
  Company Number: DE-PFIZER INC-2006151587

PATIENT
  Sex: Male
  Weight: 62 kg

DRUGS (1)
  1. GENOTROPIN [Suspect]
     Indication: HYPOPITUITARISM
     Dosage: DAILY DOSE:1.6MG-FREQ:DAILY
     Dates: start: 20031009, end: 20061001

REACTIONS (1)
  - MEDULLOBLASTOMA RECURRENT [None]
